FAERS Safety Report 11175153 (Version 11)
Quarter: 2018Q4

REPORT INFORMATION
  Report Type: Report from Study
  Country: JP (occurrence: JP)
  Receive Date: 20150609
  Receipt Date: 20181221
  Transmission Date: 20190204
  Serious: Yes (Death, Hospitalization, Other)
  Sender: FDA-Public Use
  Company Number: JP-INCYTE CORPORATION-2015IN002499

PATIENT

DRUGS (4)
  1. RED BLOOD CELLS [Concomitant]
     Active Substance: HUMAN RED BLOOD CELL
     Indication: MYELOFIBROSIS
     Dosage: 2 IU, UNK
     Route: 065
     Dates: end: 20150617
  2. HYDREA [Suspect]
     Active Substance: HYDROXYUREA
     Indication: ESSENTIAL THROMBOCYTHAEMIA
     Dosage: 1 G, UNK
     Route: 065
     Dates: end: 20150516
  3. JAKAVI [Suspect]
     Active Substance: RUXOLITINIB
     Indication: MYELOFIBROSIS
     Dosage: 10 MG, BID
     Route: 048
     Dates: start: 20150219, end: 20150515
  4. HYDREA [Suspect]
     Active Substance: HYDROXYUREA
     Indication: MYELOFIBROSIS
     Dosage: 1 G, QD
     Route: 065

REACTIONS (9)
  - Pneumonia cryptococcal [Unknown]
  - Renal impairment [Recovered/Resolved]
  - Depressed level of consciousness [Unknown]
  - Hepatic function abnormal [Recovered/Resolved]
  - Renal failure [Fatal]
  - Dizziness [Unknown]
  - Restlessness [Unknown]
  - Meningitis cryptococcal [Fatal]
  - Hepatic failure [Fatal]

NARRATIVE: CASE EVENT DATE: 20150305
